FAERS Safety Report 14163169 (Version 1)
Quarter: 2017Q4

REPORT INFORMATION
  Report Type: Spontaneous
  Country: IR (occurrence: IR)
  Receive Date: 20171107
  Receipt Date: 20171107
  Transmission Date: 20180321
  Serious: Yes (Death, Hospitalization, Other)
  Sender: FDA-Public Use
  Company Number: IR-VISTAPHARM, INC.-VER201710-000971

PATIENT
  Age: 6 Year
  Sex: Male

DRUGS (1)
  1. METHADONE [Suspect]
     Active Substance: METHADONE HYDROCHLORIDE
     Indication: PRODUCT USED FOR UNKNOWN INDICATION

REACTIONS (6)
  - Accidental exposure to product [Unknown]
  - Loss of consciousness [Unknown]
  - Toxicity to various agents [Fatal]
  - Apnoea [Unknown]
  - Pneumonia [Unknown]
  - Cerebral haemorrhage [Fatal]
